FAERS Safety Report 17865581 (Version 1)
Quarter: 2020Q2

REPORT INFORMATION
  Report Type: Spontaneous
  Country: US (occurrence: US)
  Receive Date: 20200605
  Receipt Date: 20200605
  Transmission Date: 20200714
  Serious: No
  Sender: FDA-Public Use
  Company Number: None

PATIENT
  Age: 84 Year
  Sex: Female

DRUGS (16)
  1. AMLODOPINE 10MG TAB [Concomitant]
     Dates: start: 20200319
  2. HYDRALAZINE 10MG TAB [Concomitant]
     Dates: start: 20200601
  3. PANTOPRAZOLE 40MG TAB [Concomitant]
     Dates: start: 20200601
  4. SILDENAFIL. [Suspect]
     Active Substance: SILDENAFIL
     Indication: PULMONARY ARTERIAL HYPERTENSION
     Route: 048
     Dates: start: 20191210
  5. MONTELUKAST [Concomitant]
     Active Substance: MONTELUKAST SODIUM
     Dates: start: 20200424
  6. PROVENTIL HFA [Concomitant]
     Active Substance: ALBUTEROL SULFATE
     Dates: start: 20200505
  7. POT CL MICRO TAB 20MEQ ER [Concomitant]
     Dates: start: 20200422
  8. PAROXETINE 30MG TAB [Concomitant]
     Dates: start: 20200603
  9. SPIRONLACT 25MG TB [Concomitant]
     Dates: start: 20200503
  10. BEVESPI AER 9-4.8MCG [Concomitant]
     Dates: start: 20200320
  11. TORESEMIDE 100MG TAB [Concomitant]
     Dates: start: 20200511
  12. COLESEVELM 325MCG TAB [Concomitant]
     Dates: start: 20200410
  13. ANASTROZOLE 1MG TAB [Concomitant]
     Active Substance: ANASTROZOLE
     Dates: start: 20200601
  14. FLUTICASONE SPR 50MCG [Concomitant]
     Active Substance: FLUTICASONE
     Dates: start: 20200413
  15. LEVOFLOXACIN 500MG TAB [Concomitant]
     Active Substance: LEVOFLOXACIN
     Dates: start: 20200601
  16. COLESEVELAM 625MCG TAB [Concomitant]
     Dates: start: 20200601

REACTIONS (3)
  - Renal failure [None]
  - Haemodialysis [None]
  - Therapy cessation [None]

NARRATIVE: CASE EVENT DATE: 20200604
